FAERS Safety Report 5114863-8 (Version None)
Quarter: 2006Q3

REPORT INFORMATION
  Report Type: 
  Country: None (occurrence: None)
  Receive Date: 20060926
  Receipt Date: 20051101
  Transmission Date: 20061208
  Serious: Yes (Hospitalization)
  Sender: FDA-Public Use
  Company Number: JP-BAYER-200510537BYL

PATIENT
  Sex: Male

DRUGS (1)
  1. GLUCOBAY [Suspect]
     Indication: DIABETES MELLITUS
     Dosage: UNIT DOSE: 100 MG
     Route: 048

REACTIONS (2)
  - DIAPHRAGMATIC HERNIA [None]
  - FLATULENCE [None]
